FAERS Safety Report 18151788 (Version 1)
Quarter: 2020Q3

REPORT INFORMATION
  Report Type: Spontaneous
  Country: IN (occurrence: IN)
  Receive Date: 20200814
  Receipt Date: 20200814
  Transmission Date: 20201103
  Serious: Yes (Other)
  Sender: FDA-Public Use
  Company Number: IN-PFIZER INC-2020303418

PATIENT
  Age: 3 Year
  Sex: Male

DRUGS (4)
  1. VANCOMYCIN [Concomitant]
     Active Substance: VANCOMYCIN
     Indication: PNEUMONIA FUNGAL
     Dosage: 15 MG/KG (15 MG/KG/DOSE, 8 HOURLY)
     Route: 042
  2. LEVOFLOXACIN. [Concomitant]
     Active Substance: LEVOFLOXACIN
     Indication: PNEUMONIA FUNGAL
     Dosage: 10 MG/KG (10 MG/KG/DOSE, 12 HOURLY)
     Route: 048
  3. VORICONAZOLE. [Suspect]
     Active Substance: VORICONAZOLE
     Indication: PNEUMONIA FUNGAL
     Dosage: 9 MG/KG (9 MG/KG/DOSE, 12 HOURLY)
     Route: 048
  4. AMPHOTERICIN B. [Concomitant]
     Active Substance: AMPHOTERICIN B
     Indication: PNEUMONIA FUNGAL
     Dosage: 4 MG/KG, DAILY
     Route: 042

REACTIONS (3)
  - Lung infiltration [Recovered/Resolved]
  - Respiratory distress [Recovering/Resolving]
  - Hypoxia [Recovering/Resolving]
